FAERS Safety Report 26059815 (Version 2)
Quarter: 2025Q4

REPORT INFORMATION
  Report Type: Spontaneous
  Country: EU (occurrence: EU)
  Receive Date: 20251118
  Receipt Date: 20251126
  Transmission Date: 20260118
  Serious: Yes (Hospitalization, Other)
  Sender: INCYTE
  Company Number: EU-INCYTE CORPORATION-2025IN012659

PATIENT
  Age: 60 Year

DRUGS (16)
  1. PEMAZYRE [Suspect]
     Active Substance: PEMIGATINIB
     Indication: Cholangiocarcinoma
     Dosage: 13.5 MILLIGRAM 14 DAYS/7 DAYS OF PAUSE/13.5 MG FOR 14 DAYS, THEN7 DAYS OFF (EVERY 21 DAYS)
  2. PEMAZYRE [Suspect]
     Active Substance: PEMIGATINIB
     Dosage: 13.5 MG DAILY ? 14 DAYS / 7 DAYS BREAK
  3. PEMAZYRE [Suspect]
     Active Substance: PEMIGATINIB
     Dosage: 13.5 MG DAILY ? 14 DAYS / 7 DAYS BREAK
  4. PEMAZYRE [Suspect]
     Active Substance: PEMIGATINIB
     Dosage: 13.5 MG DAILY ? 14 DAYS / 7 DAYS BREAK
  5. PEMAZYRE [Suspect]
     Active Substance: PEMIGATINIB
     Dosage: 13.5 MG DAILY ? 14 DAYS / 7 DAYS BREAK
  6. PEMAZYRE [Suspect]
     Active Substance: PEMIGATINIB
     Dosage: 13.5 MG DAILY ? 14 DAYS / 7 DAYS BREAK
  7. PEMAZYRE [Suspect]
     Active Substance: PEMIGATINIB
     Dosage: 13.5 MG DAILY ? 14 DAYS / 7 DAYS BREAK
  8. PEMAZYRE [Suspect]
     Active Substance: PEMIGATINIB
     Dosage: 13.5 MG DAILY ? 14 DAYS / 7 DAYS BREAK
  9. PEMAZYRE [Suspect]
     Active Substance: PEMIGATINIB
     Dosage: 13.5 MG DAILY ? 14 DAYS / 7 DAYS BREAK
  10. PEMAZYRE [Suspect]
     Active Substance: PEMIGATINIB
     Dosage: 13.5 MG DAILY ? 14 DAYS / 7 DAYS BREAK
  11. PEMAZYRE [Suspect]
     Active Substance: PEMIGATINIB
     Dosage: 13.5 MG DAILY ? 14 DAYS / 7 DAYS BREAK
  12. PEMAZYRE [Suspect]
     Active Substance: PEMIGATINIB
     Dosage: 13.5 MG DAILY ? 14 DAYS / 7 DAYS BREAK
  13. PEMAZYRE [Suspect]
     Active Substance: PEMIGATINIB
     Dosage: 13.5 MG DAILY ? 14 DAYS / 7 DAYS BREAK
  14. PEMAZYRE [Suspect]
     Active Substance: PEMIGATINIB
     Dosage: 13.5 MG DAILY ? 14 DAYS / 7 DAYS BREAK
  15. PEMAZYRE [Suspect]
     Active Substance: PEMIGATINIB
     Dosage: 13.5 MG DAILY ? 14 DAYS / 7 DAYS BREAK
  16. PEMAZYRE [Suspect]
     Active Substance: PEMIGATINIB
     Dosage: 13.5 MG DAILY ? 14 DAYS / 7 DAYS BREAK

REACTIONS (1)
  - Haematemesis [Recovered/Resolved]
